FAERS Safety Report 9698437 (Version 4)
Quarter: 2014Q1

REPORT INFORMATION
  Report Type: Report from Study
  Country: JP (occurrence: JP)
  Receive Date: 20131120
  Receipt Date: 20140106
  Transmission Date: 20141002
  Serious: Yes (Death, Hospitalization)
  Sender: FDA-Public Use
  Company Number: JP-EXELIXIS-XL18413003647

PATIENT
  Age: 76 Year
  Sex: Female
  Weight: 42.8 kg

DRUGS (15)
  1. XL184 [Suspect]
     Indication: NON-SMALL CELL LUNG CANCER
     Dosage: 60 MG, QD
     Route: 048
     Dates: start: 20130812, end: 20130917
  2. XL184 [Suspect]
     Dosage: 40 MG, QD
     Route: 048
     Dates: start: 20131001, end: 20131020
  3. HUSCODE [Concomitant]
  4. MEVALOTIN [Concomitant]
  5. BIO-THREE [Concomitant]
  6. LENDORMIN [Concomitant]
  7. KERATINAMIN KOWA CREAM [Concomitant]
  8. HIRUDOID [Concomitant]
  9. LOPENA [Concomitant]
  10. DOMPERIDONE [Concomitant]
  11. OMEPRAZOLE [Concomitant]
  12. PROMAC [Concomitant]
  13. KYTRIL [Concomitant]
  14. AMLODIN [Concomitant]
  15. OPSO [Concomitant]

REACTIONS (5)
  - Respiratory failure [Fatal]
  - Performance status decreased [Not Recovered/Not Resolved]
  - Dyspnoea [Not Recovered/Not Resolved]
  - Decreased appetite [Not Recovered/Not Resolved]
  - Hypertension [Not Recovered/Not Resolved]
